FAERS Safety Report 8066847-8 (Version None)
Quarter: 2012Q1

REPORT INFORMATION
  Report Type: 
  Country: None (occurrence: None)
  Receive Date: 20120124
  Receipt Date: 20120119
  Transmission Date: 20120608
  Serious: Yes (Hospitalization, Other)
  Sender: FDA-Public Use
  Company Number: US-ROCHE-803154

PATIENT
  Sex: Male
  Weight: 79.45 kg

DRUGS (3)
  1. ACCUTANE [Suspect]
     Route: 065
     Dates: start: 20010301, end: 20010801
  2. ACCUTANE [Suspect]
     Indication: ACNE
     Route: 065
     Dates: start: 20000301, end: 20000801
  3. ACCUTANE [Suspect]
     Route: 065
     Dates: start: 20040701, end: 20041201

REACTIONS (9)
  - EMOTIONAL DISTRESS [None]
  - LIP DRY [None]
  - CROHN'S DISEASE [None]
  - DEPRESSION [None]
  - ILEAL PERFORATION [None]
  - XEROSIS [None]
  - CHEILITIS [None]
  - ECZEMA [None]
  - DRY SKIN [None]
